FAERS Safety Report 15641068 (Version 1)
Quarter: 2018Q4

REPORT INFORMATION
  Report Type: Other
  Country: US (occurrence: US)
  Receive Date: 20181120
  Receipt Date: 20181120
  Transmission Date: 20190205
  Serious: No
  Sender: FDA-Public Use
  Company Number: US-LEADIANT BIOSCIENCES INC-2018STPI000437

PATIENT
  Sex: Male

DRUGS (5)
  1. CYSTAGON [Concomitant]
     Active Substance: CYSTEAMINE BITARTRATE
  2. NIFEDIPINE. [Concomitant]
     Active Substance: NIFEDIPINE
  3. LISINOPRIL. [Concomitant]
     Active Substance: LISINOPRIL
  4. CYSTARAN [Suspect]
     Active Substance: CYSTEAMINE HYDROCHLORIDE
     Indication: AMINO ACID METABOLISM DISORDER
     Dosage: 4 GTT, QD
     Route: 047
     Dates: start: 20140804
  5. VITAMIN D                          /00107901/ [Concomitant]
     Active Substance: ERGOCALCIFEROL

REACTIONS (1)
  - Eye irritation [Not Recovered/Not Resolved]
